FAERS Safety Report 17255503 (Version 3)
Quarter: 2020Q1

REPORT INFORMATION
  Report Type: Spontaneous
  Country: CZ (occurrence: CZ)
  Receive Date: 20200110
  Receipt Date: 20200224
  Transmission Date: 20200409
  Serious: No
  Sender: FDA-Public Use
  Company Number: CZ-AMGEN-CZESP2020003449

PATIENT
  Sex: Female

DRUGS (1)
  1. AIMOVIG [Suspect]
     Active Substance: ERENUMAB-AOOE
     Indication: MIGRAINE
     Dosage: 140 MILLIGRAM
     Route: 065
     Dates: start: 20191108

REACTIONS (3)
  - Tinnitus [Unknown]
  - Migraine [Unknown]
  - Hypoacusis [Unknown]

NARRATIVE: CASE EVENT DATE: 20191128
